FAERS Safety Report 4632916-5 (Version None)
Quarter: 2005Q2

REPORT INFORMATION
  Report Type: 
  Country: None (occurrence: None)
  Receive Date: 20050412
  Receipt Date: 20050405
  Transmission Date: 20051028
  Serious: Yes (Death, Other)
  Sender: FDA-Public Use
  Company Number: US-JNJFOC-20050105828

PATIENT
  Sex: Female
  Weight: 61.24 kg

DRUGS (1)
  1. DOXIL [Suspect]
     Indication: ENDOMETRIAL CANCER
     Route: 042

REACTIONS (3)
  - BLOOD LACTATE DEHYDROGENASE INCREASED [None]
  - PALMAR-PLANTAR ERYTHRODYSAESTHESIA SYNDROME [None]
  - PNEUMONIA [None]
